FAERS Safety Report 13775610 (Version 1)
Quarter: 2017Q3

REPORT INFORMATION
  Report Type: Spontaneous
  Country: RU (occurrence: RU)
  Receive Date: 20170721
  Receipt Date: 20170721
  Transmission Date: 20171127
  Serious: Yes (Hospitalization, Other)
  Sender: FDA-Public Use
  Company Number: RU-JNJFOC-20170715339

PATIENT
  Age: 59 Year
  Sex: Male
  Weight: 124 kg

DRUGS (9)
  1. XARELTO [Suspect]
     Active Substance: RIVAROXABAN
     Indication: CARDIAC FAILURE
     Route: 048
     Dates: start: 201403, end: 20160609
  2. CARVEDILOL. [Concomitant]
     Active Substance: CARVEDILOL
     Route: 065
     Dates: start: 201310
  3. SUCABITRIL VALSARTAN SODIUM HYDRATE [Suspect]
     Active Substance: SACUBITRIL\VALSARTAN
     Indication: CARDIAC FAILURE CHRONIC
     Route: 048
     Dates: start: 20150601, end: 20160610
  4. MOXONIDIN [Concomitant]
     Active Substance: MOXONIDINE
     Route: 065
     Dates: start: 20160603
  5. SUCABITRIL VALSARTAN SODIUM HYDRATE [Suspect]
     Active Substance: SACUBITRIL\VALSARTAN
     Indication: EJECTION FRACTION DECREASED
     Route: 048
     Dates: start: 20170611
  6. SUCABITRIL VALSARTAN SODIUM HYDRATE [Suspect]
     Active Substance: SACUBITRIL\VALSARTAN
     Indication: EJECTION FRACTION DECREASED
     Route: 048
     Dates: start: 20150601, end: 20160610
  7. DIGOXIN. [Concomitant]
     Active Substance: DIGOXIN
     Route: 065
     Dates: start: 2010, end: 20160609
  8. SUCABITRIL VALSARTAN SODIUM HYDRATE [Suspect]
     Active Substance: SACUBITRIL\VALSARTAN
     Indication: CARDIAC FAILURE CHRONIC
     Route: 048
     Dates: start: 20170611
  9. TORASEMID [Concomitant]
     Active Substance: TORSEMIDE
     Route: 065
     Dates: start: 2011, end: 20160610

REACTIONS (4)
  - Peptic ulcer [Recovered/Resolved]
  - Helicobacter infection [Recovered/Resolved]
  - Haemorrhagic anaemia [Unknown]
  - Gastrointestinal haemorrhage [Unknown]

NARRATIVE: CASE EVENT DATE: 2016
